FAERS Safety Report 21942280 (Version 1)
Quarter: 2023Q1

REPORT INFORMATION
  Report Type: Report from Study
  Country: US (occurrence: US)
  Receive Date: 20230202
  Receipt Date: 20230202
  Transmission Date: 20230417
  Serious: No
  Sender: FDA-Public Use
  Company Number: US-EXELIXIS-CABO-22057026

PATIENT
  Sex: Female

DRUGS (2)
  1. CABOMETYX [Suspect]
     Active Substance: CABOZANTINIB S-MALATE
     Indication: Renal cancer
     Dosage: 60 MG, QD
     Route: 048
     Dates: start: 20220709
  2. OPDIVO [Concomitant]
     Active Substance: NIVOLUMAB
     Indication: Renal cancer
     Dosage: MONTHLY

REACTIONS (5)
  - Feeling abnormal [Unknown]
  - Thyroid disorder [Unknown]
  - Memory impairment [Unknown]
  - Nausea [Unknown]
  - Product dose omission issue [Unknown]
